FAERS Safety Report 18665868 (Version 1)
Quarter: 2020Q4

REPORT INFORMATION
  Report Type: Spontaneous
  Country: US (occurrence: US)
  Receive Date: 20201226
  Receipt Date: 20201226
  Transmission Date: 20210114
  Serious: No
  Sender: FDA-Public Use
  Company Number: US-ASTRAZENECA-2020SF62257

PATIENT
  Sex: Female

DRUGS (2)
  1. TYLENOL [Concomitant]
     Active Substance: ACETAMINOPHEN
  2. CRESTOR [Suspect]
     Active Substance: ROSUVASTATIN CALCIUM
     Indication: CAROTID ARTERY DISEASE
     Route: 048

REACTIONS (8)
  - Skin discolouration [Unknown]
  - Arthritis [Unknown]
  - Visual impairment [Unknown]
  - Ocular hyperaemia [Unknown]
  - Urine abnormality [Unknown]
  - Dry mouth [Unknown]
  - Constipation [Not Recovered/Not Resolved]
  - Hypersensitivity [Unknown]
